FAERS Safety Report 17883937 (Version 1)
Quarter: 2020Q2

REPORT INFORMATION
  Report Type: Other
  Country: GB (occurrence: GB)
  Receive Date: 20200611
  Receipt Date: 20200611
  Transmission Date: 20200714
  Serious: Yes (Other)
  Sender: FDA-Public Use
  Company Number: GB-EMCURE PHARMACEUTICALS LTD-2020-EPL-000737

PATIENT
  Age: 53 Year
  Sex: Male

DRUGS (2)
  1. SULFAMETHOXAZOLE, TRIMETHOPRIM [Suspect]
     Active Substance: SULFAMETHOXAZOLE\TRIMETHOPRIM
     Indication: CHOLECYSTITIS ACUTE
     Dosage: 1920 MILLIGRAM, DAILY
     Route: 048
     Dates: start: 20200513
  2. METRONIDAZOLE. [Suspect]
     Active Substance: METRONIDAZOLE
     Indication: CHOLECYSTITIS ACUTE
     Dosage: 1200 MILLIGRAM, DAILY
     Route: 048
     Dates: start: 20200513

REACTIONS (7)
  - Paraesthesia [Unknown]
  - Diarrhoea [Unknown]
  - Skin discolouration [Unknown]
  - Hypoaesthesia [Unknown]
  - Withdrawal syndrome [Unknown]
  - Anxiety [Unknown]
  - Tinnitus [Unknown]

NARRATIVE: CASE EVENT DATE: 20200513
